FAERS Safety Report 4631458-0 (Version None)
Quarter: 2005Q2

REPORT INFORMATION
  Report Type: 
  Country: None (occurrence: None)
  Receive Date: 20050407
  Receipt Date: 20050329
  Transmission Date: 20051028
  Serious: Yes (Hospitalization, Other)
  Sender: FDA-Public Use
  Company Number: 2005051056

PATIENT
  Sex: Male
  Weight: 86.1834 kg

DRUGS (7)
  1. TIKOSYN [Suspect]
     Indication: ATRIAL FIBRILLATION
     Dosage: 0.5 MG (0.25 MG, TWICE A DAY), ORAL
     Route: 048
  2. CARVEDILOL [Suspect]
     Indication: CARDIAC DISORDER
     Dosage: SEE IMAGE
     Route: 048
  3. CANDESARTAN CILEXETIL (CANDESARTAN CILEXETIL) [Concomitant]
  4. WARFARIN SODIUM [Concomitant]
  5. CLOPIDOGREL BISULFATE [Concomitant]
  6. CITALOPRAM HYDROBROMIDE [Concomitant]
  7. LANSOPRAZOLE [Concomitant]

REACTIONS (5)
  - ASTHMA [None]
  - ATRIAL FIBRILLATION [None]
  - EJECTION FRACTION DECREASED [None]
  - FATIGUE [None]
  - HYPERTENSIVE CRISIS [None]
